FAERS Safety Report 9816985 (Version 1)
Quarter: 2014Q1

REPORT INFORMATION
  Report Type: Spontaneous
  Country: GB (occurrence: GB)
  Receive Date: 20140114
  Receipt Date: 20140114
  Transmission Date: 20141002
  Serious: Yes (Other)
  Sender: FDA-Public Use
  Company Number: GB-009507513-1401GBR003107

PATIENT
  Age: 31 Year
  Sex: Female

DRUGS (1)
  1. NEXPLANON [Suspect]
     Route: 059

REACTIONS (6)
  - Abortion [Unknown]
  - Haemorrhage [Unknown]
  - Unintended pregnancy [Recovered/Resolved]
  - Back pain [Unknown]
  - Mood swings [Unknown]
  - Feeling abnormal [Unknown]
